FAERS Safety Report 8903878 (Version 1)
Quarter: 2012Q4

REPORT INFORMATION
  Report Type: 
  Country: US (occurrence: US)
  Receive Date: 20121113
  Receipt Date: 20121113
  Transmission Date: 20130627
  Serious: No
  Sender: FDA-Public Use
  Company Number: US-AMGEN-USASP2012010435

PATIENT
  Sex: Female

DRUGS (3)
  1. ENBREL [Suspect]
     Indication: PRODUCT USED FOR UNKNOWN INDICATION
     Dosage: UNK
     Dates: start: 201201, end: 201202
  2. VARICELLA VIRUS VACCINE LIVE [Suspect]
     Dosage: UNK
     Dates: start: 20120204, end: 20120204
  3. MTX                                /00113801/ [Concomitant]
     Dosage: UNK
     Dates: end: 201202

REACTIONS (1)
  - Medication error [Unknown]
